APPROVED DRUG PRODUCT: ROFLUMILAST
Active Ingredient: ROFLUMILAST
Strength: 500MCG
Dosage Form/Route: TABLET;ORAL
Application: A208213 | Product #001 | TE Code: AB
Applicant: HETERO LABS LTD UNIT III
Approved: Nov 23, 2018 | RLD: No | RS: No | Type: RX